FAERS Safety Report 4409821-2 (Version None)
Quarter: 2004Q3

REPORT INFORMATION
  Report Type: 
  Country: None (occurrence: None)
  Receive Date: 20040726
  Receipt Date: 20040714
  Transmission Date: 20050211
  Serious: Yes (Death, Other)
  Sender: FDA-Public Use
  Company Number: STA-AE-04-MTX-162

PATIENT
  Age: 66 Year
  Sex: Female

DRUGS (17)
  1. METHOTREXATE [Suspect]
     Dosage: 15 MG 1X PER 1WK,  ORAL
     Route: 048
     Dates: start: 19440101, end: 20040101
  2. METHOTREXATE [Suspect]
     Dosage: 17.5 MG 1 X PER 1 WK, ORAL
     Route: 048
     Dates: start: 20040101
  3. ENBREL [Suspect]
     Indication: RHEUMATOID ARTHRITIS
     Dates: start: 20021001, end: 20030101
  4. ARAVA [Suspect]
     Route: 048
     Dates: start: 19990101, end: 20000101
  5. PREMARIN [Concomitant]
  6. ASPIRIN (ACETYLSALLICYLIC ACID) [Concomitant]
  7. FUROSEMIDE [Concomitant]
  8. PREDNISONE [Concomitant]
  9. KLOR-CON [Concomitant]
  10. METOPROLOL(METOPROLOL) [Concomitant]
  11. LISINOPRIL [Concomitant]
  12. TRAMADOL HCL [Concomitant]
  13. ALBUTEROL (SLBUTAMOL) [Concomitant]
  14. FOLIC ACID [Concomitant]
  15. VICODIN [Concomitant]
  16. NPH INSULIN [Concomitant]
  17. TRIAMCINOLONE [Concomitant]

REACTIONS (5)
  - CARDIAC FAILURE CONGESTIVE [None]
  - LUNG NEOPLASM MALIGNANT [None]
  - LYMPHADENOPATHY [None]
  - MYOCARDIAL INFARCTION [None]
  - WEIGHT INCREASED [None]
